FAERS Safety Report 16567182 (Version 1)
Quarter: 2019Q3

REPORT INFORMATION
  Report Type: Spontaneous
  Country: JP (occurrence: JP)
  Receive Date: 20190712
  Receipt Date: 20190712
  Transmission Date: 20191004
  Serious: Yes (Life-Threatening, Hospitalization, Other)
  Sender: FDA-Public Use
  Company Number: JP-ASTRAZENECA-2019SF00447

PATIENT
  Age: 84 Year
  Sex: Male
  Weight: 45 kg

DRUGS (9)
  1. DIART [Suspect]
     Active Substance: AZOSEMIDE
     Indication: PLEURAL EFFUSION
     Route: 048
     Dates: start: 201904, end: 20190604
  2. XALATAN [Concomitant]
     Active Substance: LATANOPROST
     Dosage: DOSE UNKNOWN
     Route: 047
  3. LAMISIL [Concomitant]
     Active Substance: TERBINAFINE HYDROCHLORIDE
     Dosage: DOSE UNKNOWN
     Route: 062
  4. METHYCOBAL [Concomitant]
     Active Substance: METHYLCOBALAMIN
     Dosage: DOSE UNKNOWN
     Route: 048
  5. BAYASPIRIN [Concomitant]
     Active Substance: ASPIRIN
     Dosage: DOSE UNKNOWN
     Route: 048
  6. ARICEPT [Concomitant]
     Active Substance: DONEPEZIL HYDROCHLORIDE
     Dosage: DOSE UNKNOWN
     Route: 048
  7. BASEN OD [Concomitant]
     Active Substance: VOGLIBOSE
     Dosage: DOSE UNKNOWN
     Route: 048
  8. GLACTIV [Concomitant]
     Active Substance: SITAGLIPTIN
     Dosage: DOSE UNKNOWN
     Route: 048
  9. FORXIGA [Suspect]
     Active Substance: DAPAGLIFLOZIN
     Indication: TYPE 2 DIABETES MELLITUS
     Route: 048
     Dates: end: 20190604

REACTIONS (4)
  - Hyperglycaemic hyperosmolar nonketotic syndrome [Unknown]
  - Pleural effusion [Unknown]
  - Diabetic hyperosmolar coma [Recovered/Resolved]
  - Hypernatraemia [Recovered/Resolved]

NARRATIVE: CASE EVENT DATE: 201904
